FAERS Safety Report 18728228 (Version 2)
Quarter: 2021Q1

REPORT INFORMATION
  Report Type: Spontaneous
  Country: DE (occurrence: DE)
  Receive Date: 20210112
  Receipt Date: 20210113
  Transmission Date: 20210419
  Serious: Yes (Other)
  Sender: FDA-Public Use
  Company Number: DE-TEVA-2021-DE-1867911

PATIENT
  Age: 81 Year
  Sex: Male

DRUGS (4)
  1. QUETIAPIN?RATHIOPHARM 25 MG [Suspect]
     Active Substance: QUETIAPINE
     Indication: RESTLESSNESS
     Dosage: INTAKE FROM 06?2020 UNTIL 11?2020 (1 IN THE EVENING, AND SINCE 08?2020 ALSO 2 TABLETS AT NIGHT AS NE
     Route: 065
     Dates: start: 2020, end: 20201120
  2. LATANOPROST. [Concomitant]
     Active Substance: LATANOPROST
     Indication: OCULAR HYPERTENSION
     Dosage: 1 GTT PER EYE IN THE EVENING
     Route: 047
  3. QUETIAPIN?RATHIOPHARM 25 MG [Suspect]
     Active Substance: QUETIAPINE
     Indication: SLEEP DISORDER
  4. VALSARTAN. [Concomitant]
     Active Substance: VALSARTAN
     Indication: HYPERTENSION
     Dosage: 1 TABLET IN THE MORNING
     Dates: start: 2010

REACTIONS (6)
  - Contraindicated product prescribed [Unknown]
  - Gait inability [Not Recovered/Not Resolved]
  - Pyrexia [Unknown]
  - Speech disorder [Not Recovered/Not Resolved]
  - Musculoskeletal stiffness [Not Recovered/Not Resolved]
  - Pain in extremity [Not Recovered/Not Resolved]

NARRATIVE: CASE EVENT DATE: 20201119
